FAERS Safety Report 11093881 (Version 1)
Quarter: 2015Q2

REPORT INFORMATION
  Report Type: Spontaneous
  Country: US (occurrence: US)
  Receive Date: 20150506
  Receipt Date: 20150506
  Transmission Date: 20150821
  Serious: Yes (Hospitalization)
  Sender: FDA-Public Use
  Company Number: US-JNJFOC-20150418946

PATIENT
  Age: 77 Year
  Sex: Female

DRUGS (19)
  1. LORATADINE. [Concomitant]
     Active Substance: LORATADINE
  2. MUCINEX [Concomitant]
     Active Substance: GUAIFENESIN
  3. SPIRIVA [Concomitant]
     Active Substance: TIOTROPIUM BROMIDE MONOHYDRATE
  4. SYMBICORT [Concomitant]
     Active Substance: BUDESONIDE\FORMOTEROL FUMARATE DIHYDRATE
  5. DILTIAZEM HCL EXTE-REL [Concomitant]
  6. LASIX [Concomitant]
     Active Substance: FUROSEMIDE
  7. DEPAKOTE [Concomitant]
     Active Substance: DIVALPROEX SODIUM
  8. COUMADIN [Concomitant]
     Active Substance: WARFARIN SODIUM
  9. VITAMIN C [Concomitant]
     Active Substance: ASCORBIC ACID
  10. WARFARIN [Concomitant]
     Active Substance: WARFARIN
  11. ALBUTEROL SULFATE. [Concomitant]
     Active Substance: ALBUTEROL SULFATE
  12. CLONAZEPAM. [Concomitant]
     Active Substance: CLONAZEPAM
  13. PAXIL [Concomitant]
     Active Substance: PAROXETINE HYDROCHLORIDE
  14. POTASSIUM [Concomitant]
     Active Substance: POTASSIUM
  15. TETRYZOLINE HYDROCHLORIDE [Concomitant]
     Active Substance: TETRAHYDROZOLINE HYDROCHLORIDE
  16. CALCIUM CARBONATE. [Concomitant]
     Active Substance: CALCIUM CARBONATE
  17. DIGOXIN. [Concomitant]
     Active Substance: DIGOXIN
  18. IMBRUVICA [Suspect]
     Active Substance: IBRUTINIB
     Indication: LYMPHOMA
     Route: 048
     Dates: start: 20150403
  19. OMEPRAZOLE. [Concomitant]
     Active Substance: OMEPRAZOLE

REACTIONS (3)
  - Chronic obstructive pulmonary disease [Recovering/Resolving]
  - Contusion [Not Recovered/Not Resolved]
  - Upper respiratory tract congestion [Recovering/Resolving]

NARRATIVE: CASE EVENT DATE: 201504
